FAERS Safety Report 12348588 (Version 4)
Quarter: 2016Q4

REPORT INFORMATION
  Report Type: Spontaneous
  Country: US (occurrence: US)
  Receive Date: 20160509
  Receipt Date: 20161005
  Transmission Date: 20170207
  Serious: No
  Sender: FDA-Public Use
  Company Number: US-ACTELION-A-US2016-135665

PATIENT
  Age: 53 Year
  Sex: Male

DRUGS (2)
  1. OPSUMIT [Suspect]
     Active Substance: MACITENTAN
     Indication: PULMONARY ARTERIAL HYPERTENSION
     Dosage: 10 MG, QD
     Route: 048
     Dates: start: 20150619
  2. UPTRAVI [Suspect]
     Active Substance: SELEXIPAG
     Indication: PULMONARY ARTERIAL HYPERTENSION
     Dosage: 200 MG, BID
     Route: 048
     Dates: start: 20160408

REACTIONS (9)
  - Weight increased [Unknown]
  - Pain in extremity [Unknown]
  - Therapy non-responder [Unknown]
  - Myalgia [Unknown]
  - Insomnia [Unknown]
  - Conjunctivitis [Unknown]
  - Unevaluable event [Unknown]
  - Swelling [Unknown]
  - Peripheral swelling [Unknown]
